FAERS Safety Report 25675626 (Version 2)
Quarter: 2025Q3

REPORT INFORMATION
  Report Type: Spontaneous
  Country: TR (occurrence: TR)
  Receive Date: 20250813
  Receipt Date: 20250818
  Transmission Date: 20251020
  Serious: Yes (Hospitalization, Other)
  Sender: PFIZER
  Company Number: TR-MLMSERVICE-20250804-PI602048-00270-1

PATIENT
  Age: 37 Year
  Sex: Male

DRUGS (1)
  1. METHYLPREDNISOLONE ACETATE [Suspect]
     Active Substance: METHYLPREDNISOLONE ACETATE
     Indication: Facial paralysis

REACTIONS (4)
  - Diabetic ketoacidosis [Unknown]
  - Pancreatitis acute [Unknown]
  - Hypertriglyceridaemia [Unknown]
  - Off label use [Unknown]
